FAERS Safety Report 14768322 (Version 3)
Quarter: 2018Q3

REPORT INFORMATION
  Report Type: Spontaneous
  Country: IT (occurrence: IT)
  Receive Date: 20180417
  Receipt Date: 20180709
  Transmission Date: 20181010
  Serious: Yes (Other)
  Sender: FDA-Public Use
  Company Number: IT-TEVA-2018-IT-880924

PATIENT
  Age: 47 Year
  Sex: Female

DRUGS (3)
  1. DIAZEPAM. [Suspect]
     Active Substance: DIAZEPAM
     Route: 065
  2. RIVOTRIL [Suspect]
     Active Substance: CLONAZEPAM
     Route: 048
  3. LAMOTRIGINE. [Suspect]
     Active Substance: LAMOTRIGINE
     Indication: EPILEPSY
     Route: 065

REACTIONS (3)
  - Drug abuse [Recovered/Resolved]
  - Head titubation [Recovered/Resolved]
  - Disorientation [Recovered/Resolved]

NARRATIVE: CASE EVENT DATE: 20171212
